FAERS Safety Report 5823846-1 (Version None)
Quarter: 2008Q3

REPORT INFORMATION
  Report Type: 
  Country: None (occurrence: None)
  Receive Date: 20080725
  Receipt Date: 20080715
  Transmission Date: 20090109
  Serious: Yes (Other)
  Sender: FDA-Public Use
  Company Number: GB-PFIZER INC-2008060208

PATIENT
  Age: 39 Year
  Sex: Female

DRUGS (2)
  1. LYRICA [Suspect]
     Indication: PAIN
     Route: 048
  2. TRAMADOL HCL [Concomitant]
     Dosage: DAILY DOSE:400MG

REACTIONS (7)
  - ACTIVITIES OF DAILY LIVING IMPAIRED [None]
  - DIZZINESS [None]
  - EYE DISORDER [None]
  - FEELING DRUNK [None]
  - SOMNOLENCE [None]
  - STRABISMUS [None]
  - VISION BLURRED [None]
